FAERS Safety Report 10007456 (Version 1)
Quarter: 2014Q1

REPORT INFORMATION
  Report Type: Spontaneous
  Country: US (occurrence: None)
  Receive Date: 20140312
  Receipt Date: 20140312
  Transmission Date: 20141002
  Serious: Yes (Other)
  Sender: FDA-Public Use
  Company Number: None

PATIENT
  Age: 54 Year
  Sex: Female
  Weight: 46 kg

DRUGS (11)
  1. EMTRICITABINE/TENOFOVIR [Suspect]
     Indication: HIV INFECTION
     Dosage: 200/300 QD ORAL,PRIOR TO ADMISSION.
     Route: 048
  2. LAMIVUDINE [Concomitant]
  3. DOCUSATE/SENNA [Concomitant]
  4. MOM CONC [Concomitant]
  5. ALPRAZOLAM [Concomitant]
  6. ALBUTEROL/IPRATROPIUM INHALER [Concomitant]
  7. LOPINAVIR/RITONAVIR [Concomitant]
  8. FLUTICASONE/SALMETEROL [Concomitant]
  9. SERTRALINE [Concomitant]
  10. GABAPENTIN [Concomitant]
  11. PRAVASTATIN [Concomitant]

REACTIONS (5)
  - Aphasia [None]
  - Fanconi syndrome [None]
  - Renal tubular acidosis [None]
  - Electrolyte imbalance [None]
  - Condition aggravated [None]
